FAERS Safety Report 13924340 (Version 1)
Quarter: 2017Q3

REPORT INFORMATION
  Report Type: Spontaneous
  Country: US (occurrence: None)
  Receive Date: 20170830
  Receipt Date: 20170830
  Transmission Date: 20171127
  Serious: Yes (Disabling, Other)
  Sender: FDA-Public Use
  Company Number: None

PATIENT
  Age: 71 Year
  Sex: Female
  Weight: 58.51 kg

DRUGS (27)
  1. PROLIA [Suspect]
     Active Substance: DENOSUMAB
     Indication: OSTEOPOROSIS
     Dosage: STRENGTH - STANDARD?DOSE - 1 SHOT?ROUTE - INJECTION
     Dates: start: 20170322
  2. ALBUTEROL. [Concomitant]
     Active Substance: ALBUTEROL
  3. COMPOUNDED MUCINEX [Concomitant]
  4. LEVOTHYROXINE. [Concomitant]
     Active Substance: LEVOTHYROXINE
  5. CALCIUM [Concomitant]
     Active Substance: CALCIUM
  6. MELATONIN [Concomitant]
     Active Substance: MELATONIN
  7. DR. DUFF^S NASAL SPRAY [Concomitant]
  8. COMPOUNDED ANTIHISTAMINE [Concomitant]
  9. L-ALANINE [Concomitant]
  10. VITAMIN D [Concomitant]
     Active Substance: CHOLECALCIFEROL
  11. ADVAIR HFA [Concomitant]
     Active Substance: FLUTICASONE PROPIONATE\SALMETEROL XINAFOATE
  12. SUCRALFATE COMPOUNDED [Concomitant]
  13. VERAPAMIL [Concomitant]
     Active Substance: VERAPAMIL HYDROCHLORIDE
  14. LACTAID [Concomitant]
     Active Substance: LACTASE
  15. PROBIOTIC [Concomitant]
     Active Substance: PROBIOTICS NOS
  16. PHILLIPS ORIGINAL MILK OF MAGNESIA [Concomitant]
     Active Substance: MAGNESIUM HYDROXIDE
  17. HYDROXYZINE [Concomitant]
     Active Substance: HYDROXYZINE HYDROCHLORIDE
  18. AFRIN [Concomitant]
     Active Substance: OXYMETAZOLINE
  19. CREON [Concomitant]
     Active Substance: PANCRELIPASE AMYLASE\PANCRELIPASE LIPASE\PANCRELIPASE PROTEASE
  20. L-GLUTAMINE /00503401/ [Concomitant]
     Active Substance: GLUTAMINE
  21. LAURICIDIN [Concomitant]
  22. VITAMIN B COMPLEX [Concomitant]
     Active Substance: CYANOCOBALAMIN\DEXPANTHENOL\NIACINAMIDE\PYRIDOXINE HYDROCHLORIDE\RIBOFLAVIN 5^-PHOSPHATE SODIUM\THIAMINE HYDROCHLORIDE\VITAMIN B COMPLEX
  23. MULTIVITAMIN/MINERAL [Concomitant]
  24. DUO-NEB [Concomitant]
  25. BACTROBAN NASAL SPRAY [Concomitant]
  26. KELOTIFERN COMPOUNDED [Concomitant]
  27. PRILOSEC [Concomitant]
     Active Substance: OMEPRAZOLE MAGNESIUM

REACTIONS (3)
  - Insomnia [None]
  - Withdrawal syndrome [None]
  - Labyrinthitis [None]

NARRATIVE: CASE EVENT DATE: 20170322
